FAERS Safety Report 13586653 (Version 2)
Quarter: 2017Q2

REPORT INFORMATION
  Report Type: Spontaneous
  Country: US (occurrence: US)
  Receive Date: 20170526
  Receipt Date: 20170607
  Transmission Date: 20170830
  Serious: No
  Sender: FDA-Public Use
  Company Number: US-BAYER-2017-099152

PATIENT
  Age: 46 Year
  Sex: Female

DRUGS (1)
  1. CLIMARA [Suspect]
     Active Substance: ESTRADIOL
     Indication: HOT FLUSH
     Dosage: 0.05 MG, UNK
     Route: 062
     Dates: start: 201611

REACTIONS (6)
  - Drug dispensing error [None]
  - Product quality issue [None]
  - Wrong technique in device usage process [None]
  - Product adhesion issue [None]
  - Drug ineffective [Recovered/Resolved]
  - Product adhesion issue [None]

NARRATIVE: CASE EVENT DATE: 20161219
